FAERS Safety Report 5955815-5 (Version None)
Quarter: 2008Q4

REPORT INFORMATION
  Report Type: 
  Country: None (occurrence: None)
  Receive Date: 20081117
  Receipt Date: 20081106
  Transmission Date: 20090506
  Serious: Yes (Hospitalization)
  Sender: FDA-Public Use
  Company Number: US-PFIZER INC-2008093972

PATIENT
  Sex: Female
  Weight: 108.9 kg

DRUGS (1)
  1. AROMASIN [Suspect]
     Indication: BREAST CANCER
     Route: 048
     Dates: start: 20050912

REACTIONS (2)
  - COLORECTAL CANCER METASTATIC [None]
  - DEHYDRATION [None]
